FAERS Safety Report 21855290 (Version 2)
Quarter: 2023Q1

REPORT INFORMATION
  Report Type: Spontaneous
  Country: AU (occurrence: AU)
  Receive Date: 20230112
  Receipt Date: 20230307
  Transmission Date: 20230418
  Serious: Yes (Death, Other)
  Sender: FDA-Public Use
  Company Number: AU-GLAXOSMITHKLINE-AU2023APC001269

PATIENT
  Sex: Female

DRUGS (2)
  1. AMBRISENTAN [Suspect]
     Active Substance: AMBRISENTAN
     Indication: Pulmonary hypertension
     Dosage: 10 MG, QD
     Route: 048
     Dates: start: 20170811
  2. TADALAFIL [Suspect]
     Active Substance: TADALAFIL
     Indication: Pulmonary hypertension
     Dosage: 20 MG, BID
     Route: 048
     Dates: start: 20170811

REACTIONS (2)
  - Death [Fatal]
  - Product dose omission issue [Unknown]
